FAERS Safety Report 6506596-8 (Version None)
Quarter: 2009Q4

REPORT INFORMATION
  Report Type: 
  Country: None (occurrence: None)
  Receive Date: 20091216
  Receipt Date: 20091207
  Transmission Date: 20100525
  Serious: Yes (Other)
  Sender: FDA-Public Use
  Company Number: 2009US004338

PATIENT
  Sex: Female

DRUGS (1)
  1. LEXISCAN [Suspect]
     Indication: SCAN MYOCARDIAL PERFUSION
     Dosage: IV NOS
     Route: 042

REACTIONS (5)
  - CONVULSION [None]
  - EYE ROLLING [None]
  - NERVOUSNESS [None]
  - PRESYNCOPE [None]
  - TREMOR [None]
